FAERS Safety Report 5212773-9 (Version None)
Quarter: 2007Q1

REPORT INFORMATION
  Report Type: 
  Country: None (occurrence: None)
  Receive Date: 20070119
  Receipt Date: 20070117
  Transmission Date: 20070707
  Serious: Yes (Other)
  Sender: FDA-Public Use
  Company Number: FR-JNJFOC-20070102364

PATIENT
  Age: 39 Year
  Sex: Male

DRUGS (2)
  1. REMICADE [Suspect]
     Route: 042
  2. REMICADE [Suspect]
     Indication: COLITIS ULCERATIVE
     Route: 042

REACTIONS (6)
  - ARTHRALGIA [None]
  - HENOCH-SCHONLEIN PURPURA [None]
  - MULTI-ORGAN FAILURE [None]
  - POUCHITIS [None]
  - RECTAL HAEMORRHAGE [None]
  - TYPE IV HYPERSENSITIVITY REACTION [None]
